FAERS Safety Report 14944231 (Version 1)
Quarter: 2018Q2

REPORT INFORMATION
  Report Type: Spontaneous
  Country: US (occurrence: US)
  Receive Date: 20180528
  Receipt Date: 20180528
  Transmission Date: 20180711
  Serious: Yes (Hospitalization)
  Sender: FDA-Public Use
  Company Number: PHEH2018US019892

PATIENT

DRUGS (1)
  1. TASIGNA [Suspect]
     Active Substance: NILOTINIB
     Indication: PRODUCT USED FOR UNKNOWN INDICATION
     Route: 048

REACTIONS (10)
  - Anaemia [Unknown]
  - Sneezing [Unknown]
  - Dizziness [Unknown]
  - Faeces discoloured [Unknown]
  - Nausea [Unknown]
  - Feeling abnormal [Unknown]
  - Nasal congestion [Unknown]
  - Peripheral swelling [Unknown]
  - Blepharospasm [Unknown]
  - Eye disorder [Unknown]
